FAERS Safety Report 11370769 (Version 7)
Quarter: 2021Q3

REPORT INFORMATION
  Report Type: Spontaneous
  Country: ES (occurrence: ES)
  Receive Date: 20150812
  Receipt Date: 20210715
  Transmission Date: 20211014
  Serious: Yes (Life-Threatening, Other)
  Sender: FDA-Public Use
  Company Number: ES-009507513-1508ESP003873

PATIENT
  Age: 72 Year
  Sex: Male
  Weight: 75 kg

DRUGS (3)
  1. TEICOPLANIN [Suspect]
     Active Substance: TEICOPLANIN
     Dosage: UNK
     Route: 065
  2. ERTAPENEM SODIUM [Suspect]
     Active Substance: ERTAPENEM SODIUM
     Indication: ANAL ABSCESS
     Dosage: 1 G, QD
     Route: 042
     Dates: start: 20150420, end: 20150425
  3. TEICOPLANIN [Suspect]
     Active Substance: TEICOPLANIN
     Indication: ANAL ABSCESS
     Dosage: 400 MG, QD
     Route: 042
     Dates: start: 20150420, end: 20150427

REACTIONS (3)
  - Status epilepticus [Recovered/Resolved]
  - Coma [Not Recovered/Not Resolved]
  - Respiratory failure [Unknown]

NARRATIVE: CASE EVENT DATE: 20150426
